FAERS Safety Report 22521178 (Version 2)
Quarter: 2023Q2

REPORT INFORMATION
  Report Type: Report from Study
  Country: US (occurrence: US)
  Receive Date: 20230605
  Receipt Date: 20230630
  Transmission Date: 20230722
  Serious: Yes (Hospitalization, Other)
  Sender: FDA-Public Use
  Company Number: US-JAZZ PHARMACEUTICALS-2023-US-011778

PATIENT
  Age: 4 Year
  Sex: Female

DRUGS (2)
  1. EPIDIOLEX [Suspect]
     Active Substance: CANNABIDIOL
     Indication: Lennox-Gastaut syndrome
     Dosage: 220 MILLIGRAM, BID
     Route: 048
     Dates: start: 20201228
  2. EPIDIOLEX [Suspect]
     Active Substance: CANNABIDIOL
     Dosage: UNK
     Route: 048
     Dates: start: 20201228

REACTIONS (2)
  - Dyspnoea [Unknown]
  - Seizure [Unknown]
